FAERS Safety Report 5025371-7 (Version None)
Quarter: 2006Q2

REPORT INFORMATION
  Report Type: 
  Country: None (occurrence: None)
  Receive Date: 20060426
  Receipt Date: 20060110
  Transmission Date: 20061013
  Serious: Yes (Other)
  Sender: FDA-Public Use
  Company Number: 2006006339

PATIENT
  Age: 65 Year
  Sex: Male
  Weight: 136.0791 kg

DRUGS (13)
  1. LYRICA [Suspect]
     Indication: NEURALGIA
     Dosage: ORAL
     Route: 048
     Dates: start: 20051201
  2. ALL OTHER NON-THERAPEUTIC PRODUCTS (ALL OTHER NON-THERAPEUTIC PRODUCTS [Suspect]
     Indication: ILL-DEFINED DISORDER
     Dates: end: 20060109
  3. ALL OTHER NON-THERAPEUTIC PRODUCTS (ALL OTHER NON-THERAPEUTIC PRODUCTS [Suspect]
     Indication: ILL-DEFINED DISORDER
     Dates: start: 20060109
  4. ACTOS [Concomitant]
  5. DEMADEX [Concomitant]
  6. ATACAND [Concomitant]
  7. ALLOPURINOL [Concomitant]
  8. COLCHICUM JTL LIQ [Concomitant]
  9. ZETIA [Concomitant]
  10. FOLIC ACID [Concomitant]
  11. PREVACID [Concomitant]
  12. CATAPRES-TTS-1 [Concomitant]
  13. VITAMIN B12 [Concomitant]

REACTIONS (2)
  - DRUG INTERACTION [None]
  - PAIN [None]
